FAERS Safety Report 9337797 (Version 1)
Quarter: 2013Q2

REPORT INFORMATION
  Report Type: Spontaneous
  Country: US (occurrence: US)
  Receive Date: 20130607
  Receipt Date: 20130607
  Transmission Date: 20140414
  Serious: Yes (Other)
  Sender: FDA-Public Use
  Company Number: US-ASTRAZENECA-2013SE40363

PATIENT
  Sex: Male

DRUGS (2)
  1. SEROQUEL [Suspect]
     Indication: ANXIETY
     Route: 048
  2. SEROQUEL [Suspect]
     Indication: ANXIETY
     Route: 048

REACTIONS (4)
  - Loss of consciousness [Unknown]
  - Feeling abnormal [Unknown]
  - Intentional drug misuse [Unknown]
  - Off label use [Unknown]
